FAERS Safety Report 8518402-0 (Version None)
Quarter: 2012Q3

REPORT INFORMATION
  Report Type: 
  Country: None (occurrence: None)
  Receive Date: 20120718
  Receipt Date: 20120710
  Transmission Date: 20120928
  Serious: Yes (Other)
  Sender: FDA-Public Use
  Company Number: AR-JNJFOC-20120705460

PATIENT
  Age: 58 Year
  Sex: Male

DRUGS (5)
  1. FOLIC ACID [Concomitant]
     Route: 065
  2. METHOTREXATE [Concomitant]
     Route: 065
  3. INFLIXIMAB, RECOMBINANT [Suspect]
     Indication: RHEUMATOID ARTHRITIS
     Route: 042
     Dates: start: 20120120
  4. INFLIXIMAB, RECOMBINANT [Suspect]
     Route: 042
     Dates: start: 20120703
  5. BETAMETHASONE [Concomitant]
     Route: 065

REACTIONS (3)
  - SKIN REACTION [None]
  - PRURITUS [None]
  - INFUSION RELATED REACTION [None]
